FAERS Safety Report 12944231 (Version 1)
Quarter: 2016Q4

REPORT INFORMATION
  Report Type: Spontaneous
  Country: GB (occurrence: GB)
  Receive Date: 20161115
  Receipt Date: 20161115
  Transmission Date: 20170207
  Serious: Yes (Other)
  Sender: FDA-Public Use
  Company Number: GB-PFIZER INC-2016520914

PATIENT
  Age: 38 Year
  Sex: Female

DRUGS (1)
  1. XANAX [Suspect]
     Active Substance: ALPRAZOLAM
     Indication: ANXIETY
     Dosage: UNK

REACTIONS (11)
  - Panic attack [Unknown]
  - Suicide attempt [Unknown]
  - Intentional overdose [Unknown]
  - Condition aggravated [Unknown]
  - Arthropathy [Unknown]
  - Anxiety [Unknown]
  - Gait disturbance [Unknown]
  - Depressed mood [Unknown]
  - Insomnia [Unknown]
  - Myalgia [Unknown]
  - Mental disorder [Unknown]
